FAERS Safety Report 5247334-9 (Version None)
Quarter: 2007Q1

REPORT INFORMATION
  Report Type: 
  Country: None (occurrence: None)
  Receive Date: 20070223
  Receipt Date: 20070223
  Transmission Date: 20070707
  Serious: Yes (Other)
  Sender: FDA-Public Use
  Company Number: None

PATIENT
  Age: 33 Year
  Sex: Male
  Weight: 124.7392 kg

DRUGS (6)
  1. DIVALPROEX SODIUM EXTENDED RELEASE [Suspect]
     Indication: SCHIZOAFFECTIVE DISORDER
     Dosage: 1500MG  BEDTIME PO
     Route: 048
     Dates: start: 20061013, end: 20061024
  2. DIVALPROEX SODIUM EXTENDED RELEASE [Concomitant]
  3. BUPROPION HCL [Concomitant]
  4. ZIPRASIDONE HCL [Concomitant]
  5. DULOXETINE [Concomitant]
  6. LORAZEPAM [Concomitant]

REACTIONS (1)
  - LIVER FUNCTION TEST ABNORMAL [None]
